FAERS Safety Report 21435170 (Version 1)
Quarter: 2022Q4

REPORT INFORMATION
  Report Type: Spontaneous
  Country: FR (occurrence: FR)
  Receive Date: 20221010
  Receipt Date: 20221010
  Transmission Date: 20230113
  Serious: Yes (Hospitalization)
  Sender: FDA-Public Use
  Company Number: None

PATIENT
  Age: 49 Year
  Sex: Male
  Weight: 109 kg

DRUGS (1)
  1. DAPTOMYCIN [Suspect]
     Active Substance: DAPTOMYCIN
     Indication: Infection
     Dosage: 350 MG
     Dates: start: 20220712, end: 20220721

REACTIONS (1)
  - Hypersensitivity pneumonitis [Recovered/Resolved]

NARRATIVE: CASE EVENT DATE: 20220721
